FAERS Safety Report 8408438-2 (Version None)
Quarter: 2012Q2

REPORT INFORMATION
  Report Type: 
  Country: None (occurrence: None)
  Receive Date: 20120604
  Receipt Date: 20120528
  Transmission Date: 20120825
  Serious: Yes (Hospitalization, Other)
  Sender: FDA-Public Use
  Company Number: VE-ABBOTT-12P-178-0940495-00

PATIENT
  Sex: Female
  Weight: 82 kg

DRUGS (3)
  1. METICORTEN [Concomitant]
     Indication: RHEUMATOID ARTHRITIS
  2. METHOTREXATE [Concomitant]
     Indication: RHEUMATOID ARTHRITIS
  3. HUMIRA [Suspect]
     Indication: RHEUMATOID ARTHRITIS
     Route: 058
     Dates: start: 20100705, end: 20120201

REACTIONS (4)
  - BRONCHITIS [None]
  - DYSPNOEA [None]
  - FIBROMYALGIA [None]
  - EPISTAXIS [None]
